FAERS Safety Report 9939043 (Version 1)
Quarter: 2014Q1

REPORT INFORMATION
  Report Type: Report from Study
  Country: US (occurrence: US)
  Receive Date: 20140303
  Receipt Date: 20140303
  Transmission Date: 20141002
  Serious: No
  Sender: FDA-Public Use
  Company Number: US-ABBVIE-13P-163-1038324-00

PATIENT
  Age: 56 Year
  Sex: Male

DRUGS (22)
  1. HUMIRA [Suspect]
     Indication: ANKYLOSING SPONDYLITIS
     Dates: start: 20121020
  2. DOXAZOSIN [Concomitant]
     Indication: PROSTATIC DISORDER
     Dosage: DAILY
  3. ASA [Concomitant]
     Indication: CARDIAC DISORDER
     Dosage: DAILY
  4. DOCUSATE SODIUM [Concomitant]
     Indication: CONSTIPATION PROPHYLAXIS
     Dosage: DAILY
  5. FENOFIBRATE [Concomitant]
     Indication: BLOOD CHOLESTEROL INCREASED
  6. GABABENTIN [Concomitant]
     Indication: NEUROPATHY PERIPHERAL
     Dosage: 1 TAB IN THE MORNING, 1 TABLET AT NOON, AND 2 TABLETS AT BEDTIME
  7. LEVOTHYROXINE [Concomitant]
     Indication: HYPOTHYROIDISM
     Dosage: DAILY
  8. CLONAZEPAM [Concomitant]
     Indication: ANXIETY
     Dosage: AT BEDTIME
  9. CLONAZEPAM [Concomitant]
     Indication: INSOMNIA
  10. PENTASA [Concomitant]
     Indication: CROHN^S DISEASE
  11. BUPROPION [Concomitant]
     Indication: BIPOLAR DISORDER
     Dosage: DAILY
  12. CINNAMON [Concomitant]
     Indication: DIABETES MELLITUS
     Dosage: DAILY
  13. CALCIUM PLUS VIT D [Concomitant]
     Indication: PRODUCT USED FOR UNKNOWN INDICATION
     Dosage: DAILY
  14. MULTI VIT [Concomitant]
     Indication: PRODUCT USED FOR UNKNOWN INDICATION
     Dosage: DAILY
  15. FISH OIL [Concomitant]
     Indication: BLOOD CHOLESTEROL
     Dosage: DAILY
  16. VIT C [Concomitant]
     Indication: PRODUCT USED FOR UNKNOWN INDICATION
     Dosage: DAILY
  17. FLUNISOL [Concomitant]
     Indication: HYPERSENSITIVITY
     Dosage: 25MG/0.25%
  18. ZYRTEC [Concomitant]
     Indication: HYPERSENSITIVITY
     Dosage: DAILY
  19. NOVOLOG SLIDING SCALE [Concomitant]
     Indication: TYPE 1 DIABETES MELLITUS
     Dosage: WITH MEALS AND SNACKS APPROXIMATELY 5-6 TIMES A DAY
  20. LANTUS [Concomitant]
     Indication: TYPE 1 DIABETES MELLITUS
     Dosage: AT BEDTIME
  21. ALBUTEROL [Concomitant]
     Indication: ASTHMA
     Dosage: NEBULIZER AND INHALER
  22. SLEEP APNEA MACHINE [Concomitant]
     Indication: PRODUCT USED FOR UNKNOWN INDICATION

REACTIONS (2)
  - Sinusitis [Recovering/Resolving]
  - Bronchitis [Recovering/Resolving]
